FAERS Safety Report 11003291 (Version 1)
Quarter: 2015Q2

REPORT INFORMATION
  Report Type: Spontaneous
  Country: US (occurrence: None)
  Receive Date: 20150402
  Receipt Date: 20150402
  Transmission Date: 20150821
  Serious: Yes (Other)
  Sender: FDA-Public Use
  Company Number: US-2014-11274

PATIENT

DRUGS (6)
  1. TACROLIMUS. [Concomitant]
     Active Substance: TACROLIMUS
  2. LEVETIRACETAM. [Concomitant]
     Active Substance: LEVETIRACETAM
  3. GRANULOCYTE COLONY STIMULATING FACTOR [Concomitant]
     Active Substance: GRANULOCYTE COLONY-STIMULATING FACTOR NOS
  4. MYCOPHENOLATE MOFETIL. [Concomitant]
     Active Substance: MYCOPHENOLATE MOFETIL
  5. BUSULFEX [Suspect]
     Active Substance: BUSULFAN
     Indication: CORD BLOOD TRANSPLANT THERAPY
     Dosage: (DAYS-5 TO 2)
     Route: 042
  6. FLUDARABINE [Suspect]
     Active Substance: FLUDARABINE PHOSPHATE
     Indication: CORD BLOOD TRANSPLANT THERAPY
     Route: 042

REACTIONS (9)
  - Cytomegalovirus viraemia [None]
  - Pneumonia pseudomonal [None]
  - Mucosal inflammation [None]
  - Off label use [None]
  - Bacterial infection [None]
  - Viraemia [None]
  - Cystitis viral [None]
  - Metapneumovirus infection [None]
  - Drug administration error [None]
